FAERS Safety Report 4725897-7 (Version None)
Quarter: 2005Q3

REPORT INFORMATION
  Report Type: 
  Country: None (occurrence: None)
  Receive Date: 20050727
  Receipt Date: 20050308
  Transmission Date: 20060218
  Serious: Yes (Hospitalization)
  Sender: FDA-Public Use
  Company Number: US-MERCK-0503USA01392

PATIENT
  Age: 58 Year
  Sex: Male
  Weight: 95 kg

DRUGS (5)
  1. VIOXX [Suspect]
     Indication: RHEUMATOID ARTHRITIS
     Route: 048
     Dates: start: 20030601, end: 20031001
  2. VIOXX [Suspect]
     Route: 048
     Dates: start: 20030601, end: 20031001
  3. FOLIC ACID [Concomitant]
     Route: 048
  4. METHOTREXATE [Concomitant]
     Route: 048
  5. NORVASC [Concomitant]
     Indication: HYPERTENSION
     Route: 048

REACTIONS (6)
  - ACUTE MYOCARDIAL INFARCTION [None]
  - CORONARY ARTERY DISEASE [None]
  - ESSENTIAL HYPERTENSION [None]
  - OVERDOSE [None]
  - VENTRICULAR HYPERTROPHY [None]
  - WOUND SECRETION [None]
